FAERS Safety Report 15701532 (Version 2)
Quarter: 2020Q2

REPORT INFORMATION
  Report Type: Spontaneous
  Country: US (occurrence: US)
  Receive Date: 20181208
  Receipt Date: 20200427
  Transmission Date: 20200713
  Serious: Yes (Hospitalization)
  Sender: FDA-Public Use
  Company Number: US-JNJFOC-20181135095

PATIENT
  Age: 57 Year
  Sex: Male

DRUGS (2)
  1. NAPROXEN. [Suspect]
     Active Substance: NAPROXEN
     Indication: PAIN
     Dosage: TWICE A WEEK
     Route: 065
     Dates: start: 201701
  2. XARELTO [Suspect]
     Active Substance: RIVAROXABAN
     Indication: DEEP VEIN THROMBOSIS
     Route: 048
     Dates: start: 20170205, end: 20170211

REACTIONS (1)
  - Gastritis haemorrhagic [Recovering/Resolving]

NARRATIVE: CASE EVENT DATE: 20170212
